FAERS Safety Report 8726935 (Version 1)
Quarter: 2012Q4

REPORT INFORMATION
  Report Type: 
  Country: US (occurrence: US)
  Receive Date: 20120907
  Receipt Date: 20120907
  Transmission Date: 20130627
  Serious: Yes (Other)
  Sender: FDA-Public Use
  Company Number: US-ROCHE-1100711

PATIENT
  Sex: Female

DRUGS (5)
  1. ACTIVASE [Suspect]
     Indication: ACUTE MYOCARDIAL INFARCTION
     Route: 065
  2. HEPARIN [Concomitant]
  3. ASPIRIN [Concomitant]
  4. MAGNESIUM SULPHATE [Concomitant]
  5. NITROGLYCERIN [Concomitant]

REACTIONS (1)
  - Extrasystoles [Unknown]
